FAERS Safety Report 14242298 (Version 1)
Quarter: 2017Q4

REPORT INFORMATION
  Report Type: Spontaneous
  Country: US (occurrence: US)
  Receive Date: 20171130
  Receipt Date: 20171130
  Transmission Date: 20180321
  Serious: No
  Sender: FDA-Public Use
  Company Number: None

PATIENT
  Age: 30 Year
  Sex: Female
  Weight: 58.5 kg

DRUGS (2)
  1. DAILY VITAMIN [Concomitant]
     Active Substance: VITAMINS
  2. BIOTIN [Suspect]
     Active Substance: BIOTIN
     Indication: HAIR GROWTH ABNORMAL
     Dosage: ?          QUANTITY:250 TABLET(S);?
     Route: 048
     Dates: start: 20170901, end: 20171130

REACTIONS (2)
  - Glycosylated haemoglobin increased [None]
  - Thyroid hormones decreased [None]
